FAERS Safety Report 4975795-9 (Version None)
Quarter: 2006Q2

REPORT INFORMATION
  Report Type: 
  Country: None (occurrence: None)
  Receive Date: 20060411
  Receipt Date: 20060330
  Transmission Date: 20061013
  Serious: Yes (Hospitalization)
  Sender: FDA-Public Use
  Company Number: GB200603007035

PATIENT
  Age: 53 Year
  Sex: Male

DRUGS (2)
  1. OLANZAPINE [Suspect]
     Dosage: 260 MG, OTHER
  2. GLICLAZIDE (GLICLAZIDE) [Concomitant]

REACTIONS (19)
  - ABNORMAL BEHAVIOUR [None]
  - ANTICHOLINERGIC SYNDROME [None]
  - BRAIN STEM HAEMORRHAGE [None]
  - CARDIOTOXICITY [None]
  - DEPRESSED LEVEL OF CONSCIOUSNESS [None]
  - EXTENSOR PLANTAR RESPONSE [None]
  - EXTRAPYRAMIDAL DISORDER [None]
  - HYPERPYREXIA [None]
  - HYPERTONIA [None]
  - HYPOTENSION [None]
  - INTENTIONAL OVERDOSE [None]
  - LOSS OF CONSCIOUSNESS [None]
  - MIOSIS [None]
  - MOVEMENT DISORDER [None]
  - MYDRIASIS [None]
  - RESPIRATORY DEPRESSION [None]
  - SINUS TACHYCARDIA [None]
  - SOMNOLENCE [None]
  - VISION BLURRED [None]
